FAERS Safety Report 18009143 (Version 1)
Quarter: 2020Q3

REPORT INFORMATION
  Report Type: Spontaneous
  Country: US (occurrence: US)
  Receive Date: 20200710
  Receipt Date: 20200710
  Transmission Date: 20201103
  Serious: Yes (Hospitalization)
  Sender: FDA-Public Use
  Company Number: US-SAOL THERAPEUTICS-2019SAO00368

PATIENT
  Age: 49 Year
  Sex: Male

DRUGS (3)
  1. LIORESAL [Suspect]
     Active Substance: BACLOFEN
     Dosage: 562.9 ?G, \DAY
     Route: 037
     Dates: start: 20190904, end: 20190905
  2. LIORESAL [Suspect]
     Active Substance: BACLOFEN
     Indication: MUSCLE SPASTICITY
     Dosage: 450.6 ?G, \DAY
     Route: 037
     Dates: end: 20190904
  3. LIORESAL [Suspect]
     Active Substance: BACLOFEN
     Dosage: UNK; MIMINUM RATE
     Route: 037
     Dates: start: 20190905

REACTIONS (6)
  - Overdose [Recovered/Resolved]
  - Hyporesponsive to stimuli [Recovered/Resolved]
  - Device infusion issue [Recovered/Resolved]
  - Lethargy [Recovered/Resolved]
  - Cold sweat [Recovered/Resolved]
  - Muscle spasticity [Recovered/Resolved]

NARRATIVE: CASE EVENT DATE: 20190506
